FAERS Safety Report 6196107-1 (Version None)
Quarter: 2009Q2

REPORT INFORMATION
  Report Type: 
  Country: None (occurrence: None)
  Receive Date: 20090520
  Receipt Date: 20090511
  Transmission Date: 20091009
  Serious: Yes (Other)
  Sender: FDA-Public Use
  Company Number: US-KINGPHARMUSA00001-K200900578

PATIENT
  Age: 63 Year
  Sex: Male

DRUGS (2)
  1. LEVOXYL [Suspect]
     Dosage: 100 MCG, UNK
     Route: 048
     Dates: start: 20010101
  2. LEVOXYL [Suspect]
     Dosage: 112 MCG, UNK
     Route: 048
     Dates: start: 20010101

REACTIONS (2)
  - ALANINE AMINOTRANSFERASE INCREASED [None]
  - ASPARTATE AMINOTRANSFERASE INCREASED [None]
